FAERS Safety Report 15999929 (Version 1)
Quarter: 2019Q1

REPORT INFORMATION
  Report Type: Spontaneous
  Country: US (occurrence: US)
  Receive Date: 20190223
  Receipt Date: 20190223
  Transmission Date: 20190418
  Serious: No
  Sender: FDA-Public Use
  Company Number: None

PATIENT
  Age: 56 Year
  Sex: Female
  Weight: 73.8 kg

DRUGS (1)
  1. ACTONEL [Suspect]
     Active Substance: RISEDRONATE SODIUM
     Indication: OSTEOPOROSIS
     Dosage: ?          OTHER FREQUENCY:MONTHLY (MORNING);?
     Route: 048
     Dates: start: 20180317, end: 20180418

REACTIONS (4)
  - Myalgia [None]
  - Movement disorder [None]
  - Screaming [None]
  - Arthralgia [None]

NARRATIVE: CASE EVENT DATE: 20180317
